FAERS Safety Report 21475547 (Version 1)
Quarter: 2022Q4

REPORT INFORMATION
  Report Type: Spontaneous
  Country: US (occurrence: US)
  Receive Date: 20221019
  Receipt Date: 20221019
  Transmission Date: 20230113
  Serious: No
  Sender: FDA-Public Use
  Company Number: US-ALLERGAN-2201858US

PATIENT
  Sex: Female

DRUGS (2)
  1. LINZESS [Suspect]
     Active Substance: LINACLOTIDE
     Indication: Irritable bowel syndrome
     Dosage: 290 ?G, QD
     Dates: start: 2021
  2. UNSPECIFIED OPIOID MEDICATION [Concomitant]
     Dosage: 70 MG, QD

REACTIONS (5)
  - Inappropriate schedule of product administration [Unknown]
  - Product dispensing error [Unknown]
  - Dyschezia [Not Recovered/Not Resolved]
  - Flatulence [Unknown]
  - Drug ineffective [Unknown]
